FAERS Safety Report 6528549-6 (Version None)
Quarter: 2009Q4

REPORT INFORMATION
  Report Type: 
  Country: None (occurrence: None)
  Receive Date: 20091231
  Receipt Date: 20091215
  Transmission Date: 20100525
  Serious: Yes (Other)
  Sender: FDA-Public Use
  Company Number: 2009SE004893

PATIENT
  Age: 39 Year
  Sex: Female
  Weight: 77 kg

DRUGS (11)
  1. ALOXI [Suspect]
     Indication: PROPHYLAXIS OF NAUSEA AND VOMITING
     Dosage: 0.25MG, SINGLE, IV BOLUS;0.25 MG, SINGLE, IV BOLUS;0.25MG, SINGLE, IV BOLUS
     Route: 040
     Dates: start: 20091021, end: 20091021
  2. ALOXI [Suspect]
     Indication: PROPHYLAXIS OF NAUSEA AND VOMITING
     Dosage: 0.25MG, SINGLE, IV BOLUS;0.25 MG, SINGLE, IV BOLUS;0.25MG, SINGLE, IV BOLUS
     Route: 040
     Dates: start: 20091105, end: 20091105
  3. ALOXI [Suspect]
     Indication: PROPHYLAXIS OF NAUSEA AND VOMITING
     Dosage: 0.25MG, SINGLE, IV BOLUS;0.25 MG, SINGLE, IV BOLUS;0.25MG, SINGLE, IV BOLUS
     Route: 040
     Dates: start: 20091119, end: 20091119
  4. BETAPRED BETAMETHASONE SODIUM PHOSPHATE) INJECTION [Concomitant]
  5. EMEND [Concomitant]
  6. ELOXATIN [Concomitant]
  7. FLUOROURACIL [Concomitant]
  8. LEUKOVORIN (CALCIUM FOLINATE) [Concomitant]
  9. PRIMPERAN TAB [Concomitant]
  10. LORAZEPAM [Concomitant]
  11. NAVOBAN (TROPISETRON HYDROCHLORIDE) [Concomitant]

REACTIONS (4)
  - ABDOMINAL PAIN [None]
  - DIARRHOEA [None]
  - INFLUENZA [None]
  - VOMITING [None]
